FAERS Safety Report 16964730 (Version 3)
Quarter: 2025Q3

REPORT INFORMATION
  Report Type: Spontaneous
  Country: EU (occurrence: EU)
  Receive Date: 20191028
  Receipt Date: 20250825
  Transmission Date: 20251020
  Serious: Yes (Other)
  Sender: AUROBINDO
  Company Number: None

PATIENT
  Age: 94 Year
  Sex: Female

DRUGS (15)
  1. PREGABALIN [Interacting]
     Active Substance: PREGABALIN
     Indication: Post herpetic neuralgia
     Dosage: 225 MILLIGRAM, DAILY (50 MG-0-175 MG )
     Route: 065
  2. PREGABALIN [Interacting]
     Active Substance: PREGABALIN
     Route: 065
  3. PREGABALIN [Interacting]
     Active Substance: PREGABALIN
     Route: 065
  4. VALACYCLOVIR HYDROCHLORIDE [Suspect]
     Active Substance: VALACYCLOVIR HYDROCHLORIDE
     Indication: Product used for unknown indication
     Route: 065
  5. LIDOCAINE [Suspect]
     Active Substance: LIDOCAINE
     Indication: Product used for unknown indication
     Route: 065
  6. MORPHINE [Interacting]
     Active Substance: MORPHINE
     Indication: Product used for unknown indication
     Route: 065
  7. TRIAMCINOLONE ACETONIDE [Concomitant]
     Active Substance: TRIAMCINOLONE ACETONIDE
     Indication: Nerve block
     Route: 065
  8. CAPSAICIN [Concomitant]
     Active Substance: CAPSAICIN
     Indication: Anaesthesia
     Route: 065
  9. EMLA [Concomitant]
     Active Substance: LIDOCAINE\PRILOCAINE
     Indication: Anaesthesia
     Route: 061
  10. DULOXETINE [Concomitant]
     Active Substance: DULOXETINE
     Indication: Anaesthesia
     Route: 065
  11. BUPIVACAINE [Concomitant]
     Active Substance: BUPIVACAINE
     Indication: Nerve block
     Route: 065
  12. BUPIVACAINE [Concomitant]
     Active Substance: BUPIVACAINE
     Route: 065
  13. METAMIZOLE SODIUM [Concomitant]
     Active Substance: METAMIZOLE SODIUM
     Indication: Product used for unknown indication
     Route: 065
  14. ACETAMINOPHEN [Concomitant]
     Active Substance: ACETAMINOPHEN
     Indication: Product used for unknown indication
     Route: 065
  15. TRIAMCINOLONE ACETONIDE [Concomitant]
     Active Substance: TRIAMCINOLONE ACETONIDE
     Indication: Product used for unknown indication
     Route: 065

REACTIONS (4)
  - Myoclonus [Unknown]
  - Hallucination, visual [Unknown]
  - Drug interaction [Unknown]
  - Contraindicated product administered [Unknown]
